FAERS Safety Report 9684358 (Version 1)
Quarter: 2013Q4

REPORT INFORMATION
  Report Type: Spontaneous
  Country: US (occurrence: US)
  Receive Date: 20131112
  Receipt Date: 20131112
  Transmission Date: 20140711
  Serious: No
  Sender: FDA-Public Use
  Company Number: US-009507513-1311USA002555

PATIENT
  Sex: Male

DRUGS (2)
  1. JANUMET [Suspect]
     Route: 048
  2. NOVOLIN [Suspect]

REACTIONS (2)
  - Visual acuity reduced transiently [Unknown]
  - Memory impairment [Unknown]
